FAERS Safety Report 6567377-2 (Version None)
Quarter: 2010Q1

REPORT INFORMATION
  Report Type: 
  Country: None (occurrence: None)
  Receive Date: 20100202
  Receipt Date: 20100126
  Transmission Date: 20100710
  Serious: Yes (Hospitalization)
  Sender: FDA-Public Use
  Company Number: PHHO2008JP14512

PATIENT
  Sex: Male
  Weight: 50 kg

DRUGS (16)
  1. NEORAL [Suspect]
     Indication: RENAL TRANSPLANT
     Dosage: 100 MG / DAY
     Route: 048
     Dates: start: 20080723, end: 20081014
  2. NEORAL [Suspect]
     Dosage: 60 MG / DAY
     Route: 048
     Dates: start: 20081015
  3. SIMULECT [Suspect]
     Indication: RENAL TRANSPLANT
  4. MYCOPHENOLATE MOFETIL [Suspect]
     Indication: RENAL TRANSPLANT
     Dosage: 1000 MG / DAY
     Route: 048
     Dates: start: 20080527
  5. MYCOPHENOLATE MOFETIL [Suspect]
     Dosage: 1000 MG / DAY
     Route: 048
     Dates: start: 20080819, end: 20081206
  6. MEDROL [Suspect]
     Indication: RENAL TRANSPLANT
     Dosage: 6 MG / DAY
     Route: 048
     Dates: start: 20081029
  7. DIOVAN [Concomitant]
     Indication: HYPERTENSION
  8. TAKEPRON [Concomitant]
     Indication: PROPHYLAXIS
  9. MYSLEE [Concomitant]
     Indication: INSOMNIA
  10. GLYCERON TAB [Concomitant]
     Indication: HEPATIC FUNCTION ABNORMAL
  11. NORVASC [Concomitant]
     Indication: HYPERTENSION
  12. CARDENALIN [Concomitant]
     Indication: HYPERTENSION
  13. LASIX [Concomitant]
     Indication: OEDEMA PERIPHERAL
  14. ALDACTONE [Concomitant]
     Indication: OEDEMA PERIPHERAL
  15. ISODINE [Concomitant]
     Indication: INFECTION PROPHYLAXIS
  16. ACUATIM [Concomitant]
     Indication: ACNE

REACTIONS (10)
  - ARTHRALGIA [None]
  - COUGH [None]
  - DIARRHOEA [None]
  - GASTROENTERITIS [None]
  - MALAISE [None]
  - NAUSEA [None]
  - PYREXIA [None]
  - RHINORRHOEA [None]
  - UPPER RESPIRATORY TRACT INFLAMMATION [None]
  - VOMITING [None]
